FAERS Safety Report 7979632 (Version 4)
Quarter: 2013Q1

REPORT INFORMATION
  Report Type: Report from Study
  Country: DE (occurrence: DE)
  Receive Date: 20110608
  Receipt Date: 20130123
  Transmission Date: 20140127
  Serious: Yes (Death, Hospitalization)
  Sender: FDA-Public Use
  Company Number: DE-ABBOTT-11P-062-0730558-00

PATIENT
  Age: 63 None
  Sex: Male
  Weight: 59 kg

DRUGS (11)
  1. HUMIRA [Suspect]
     Indication: PSORIATIC ARTHROPATHY
     Route: 058
     Dates: start: 20091120, end: 20110207
  2. HUMIRA [Suspect]
     Indication: PSORIASIS
  3. ATACAND [Concomitant]
     Indication: PRODUCT USED FOR UNKNOWN INDICATION
     Route: 048
     Dates: start: 201102
  4. AMLODIPIN [Concomitant]
     Indication: PRODUCT USED FOR UNKNOWN INDICATION
     Dosage: AMLODIPIN 10
     Route: 048
     Dates: start: 201102
  5. CITALOPRAM [Concomitant]
     Indication: PRODUCT USED FOR UNKNOWN INDICATION
     Dosage: CIPRAMIL 20
     Route: 048
     Dates: start: 201102
  6. MIRTAZAPIN [Concomitant]
     Indication: PRODUCT USED FOR UNKNOWN INDICATION
     Route: 048
     Dates: start: 201102
  7. PENICILLIN [Concomitant]
     Indication: PRODUCT USED FOR UNKNOWN INDICATION
     Dosage: 15 MILLION IU THREE TIMES DAILY
     Route: 048
     Dates: start: 2009, end: 20091122
  8. SPIRIVA [Concomitant]
     Indication: PRODUCT USED FOR UNKNOWN INDICATION
     Route: 055
     Dates: start: 201102
  9. THEOPHYLLIN [Concomitant]
     Indication: PRODUCT USED FOR UNKNOWN INDICATION
     Dosage: THEOPHYLLIN 300 MG, 450MG DAILY
     Route: 048
     Dates: start: 201102
  10. SYMBICORT [Concomitant]
     Indication: PRODUCT USED FOR UNKNOWN INDICATION
     Route: 055
     Dates: start: 201102
  11. FUMARIC ACID ESTER [Concomitant]
     Indication: PSORIASIS
     Dosage: UNKNOWN
     Dates: start: 20090923

REACTIONS (9)
  - Renal failure acute [Unknown]
  - Respiratory failure [Unknown]
  - Septic shock [Fatal]
  - Hyperkalaemia [Unknown]
  - Metabolic acidosis [Unknown]
  - Systemic inflammatory response syndrome [Fatal]
  - Organ failure [Fatal]
  - Multi-organ failure [Fatal]
  - Chronic obstructive pulmonary disease [Fatal]
